FAERS Safety Report 4608739-X (Version None)
Quarter: 2005Q1

REPORT INFORMATION
  Report Type: 
  Country: None (occurrence: None)
  Receive Date: 20050309
  Receipt Date: 20050221
  Transmission Date: 20050727
  Serious: Yes (Death, Hospitalization)
  Sender: FDA-Public Use
  Company Number: EWC050242665

PATIENT
  Age: 51 Year
  Sex: Female
  Weight: 68 kg

DRUGS (11)
  1. XIGRIS [Suspect]
     Indication: SEPSIS
     Dosage: 24 UG/KG/HR
     Dates: start: 20050207, end: 20050209
  2. XIGRIS [Suspect]
     Indication: SEPTIC SHOCK
     Dosage: 24 UG/KG/HR
     Dates: start: 20050207, end: 20050209
  3. NOREPINEPHRINE [Concomitant]
  4. DOBUTAMINE HCL [Concomitant]
  5. LIDOCAINE W/VASOPRESSIN/NOREPINEPHRINE [Concomitant]
  6. GLIPRESSINA (TERLIPRESSIN ACETATE) [Concomitant]
  7. MERREM [Concomitant]
  8. ZITHROMAX [Concomitant]
  9. TARGOSID (TEICOPLANIN) [Concomitant]
  10. METRONIDAZOLE [Concomitant]
  11. FLEBOCORTID (HYDROCORTISONE SODIUM SUCCINATE) [Concomitant]

REACTIONS (6)
  - CEREBRAL HAEMORRHAGE [None]
  - CONDITION AGGRAVATED [None]
  - DEPRESSED LEVEL OF CONSCIOUSNESS [None]
  - HAEMORRHAGE INTRACRANIAL [None]
  - PHARMACEUTICAL PRODUCT COMPLAINT [None]
  - THROMBOCYTOPENIA [None]
